FAERS Safety Report 21333372 (Version 1)
Quarter: 2022Q3

REPORT INFORMATION
  Report Type: Spontaneous
  Country: JP (occurrence: JP)
  Receive Date: 20220914
  Receipt Date: 20220914
  Transmission Date: 20221026
  Serious: Yes (Other)
  Sender: FDA-Public Use
  Company Number: JP-PFIZER INC-202201147714

PATIENT
  Sex: Female

DRUGS (1)
  1. MEDROL [Suspect]
     Active Substance: METHYLPREDNISOLONE
     Indication: Collagen disorder
     Dosage: 16 MG
     Route: 048

REACTIONS (5)
  - Rheumatoid arthritis [Unknown]
  - Cataract [Unknown]
  - Constipation [Unknown]
  - Malaise [Unknown]
  - Arthralgia [Unknown]
